FAERS Safety Report 19574732 (Version 1)
Quarter: 2021Q3

REPORT INFORMATION
  Report Type: Spontaneous
  Country: AT (occurrence: AT)
  Receive Date: 20210719
  Receipt Date: 20210719
  Transmission Date: 20211014
  Serious: Yes (Hospitalization)
  Sender: FDA-Public Use
  Company Number: AT-LUPIN PHARMACEUTICALS INC.-2021-12045

PATIENT
  Sex: Male

DRUGS (10)
  1. LEVETIRACETAM. [Suspect]
     Active Substance: LEVETIRACETAM
     Indication: PARTIAL SEIZURES
     Dosage: 3000 MILLIGRAM, QD
     Route: 065
  2. TOPIRAMAT [Suspect]
     Active Substance: TOPIRAMATE
     Indication: PARTIAL SEIZURES
     Dosage: 200 MILLIGRAM, QD
     Route: 065
  3. LACOSAMIDE. [Suspect]
     Active Substance: LACOSAMIDE
     Indication: PARTIAL SEIZURES
     Dosage: 400 MILLIGRAM, QD
     Route: 065
  4. CORTISONE [Suspect]
     Active Substance: CORTISONE
     Indication: PARTIAL SEIZURES
     Dosage: UNK
     Route: 065
  5. PHENYTOIN SODIUM. [Suspect]
     Active Substance: PHENYTOIN SODIUM
     Indication: PARTIAL SEIZURES
     Dosage: 750 MILLIGRAM, QD
     Route: 065
  6. CLOBAZAM. [Suspect]
     Active Substance: CLOBAZAM
     Indication: PARTIAL SEIZURES
     Dosage: 10 MILLIGRAM, QD
     Route: 065
  7. MIDAZOLAM. [Concomitant]
     Active Substance: MIDAZOLAM
     Indication: ANAESTHESIA
     Dosage: UNK
     Route: 065
  8. PERAMPANEL [Suspect]
     Active Substance: PERAMPANEL
     Indication: PARTIAL SEIZURES
     Dosage: 6 MILLIGRAM, QD
     Route: 048
     Dates: start: 201212
  9. KETAMINE [Concomitant]
     Active Substance: KETAMINE
     Indication: ANAESTHESIA
     Dosage: UNK
     Route: 065
  10. LEVETIRACETAM. [Suspect]
     Active Substance: LEVETIRACETAM
     Dosage: 2000 MILLIGRAM, QD
     Route: 065

REACTIONS (1)
  - Drug ineffective [Unknown]
